FAERS Safety Report 14022531 (Version 1)
Quarter: 2017Q3

REPORT INFORMATION
  Report Type: Spontaneous
  Country: US (occurrence: US)
  Receive Date: 20170928
  Receipt Date: 20170928
  Transmission Date: 20171128
  Serious: No
  Sender: FDA-Public Use
  Company Number: US-SA-2016SA174999

PATIENT
  Sex: Male

DRUGS (10)
  1. POTASSIUM [Concomitant]
     Active Substance: POTASSIUM
  2. ATORVASTATIN CALCIUM. [Concomitant]
     Active Substance: ATORVASTATIN CALCIUM
  3. BREO ELLIPTA [Concomitant]
     Active Substance: FLUTICASONE FUROATE\VILANTEROL TRIFENATATE
     Dosage: INH
  4. SPIRONOLACTONE. [Concomitant]
     Active Substance: SPIRONOLACTONE
  5. TECFIDERA [Concomitant]
     Active Substance: DIMETHYL FUMARATE
  6. FUROSEMIDE. [Concomitant]
     Active Substance: FUROSEMIDE
  7. CARVEDILOL. [Concomitant]
     Active Substance: CARVEDILOL
  8. LISINOPRIL. [Concomitant]
     Active Substance: LISINOPRIL
  9. AUBAGIO [Suspect]
     Active Substance: TERIFLUNOMIDE
     Indication: MULTIPLE SCLEROSIS
     Route: 065
  10. VENTOLIN HFA [Concomitant]
     Active Substance: ALBUTEROL SULFATE
     Dosage: HFA

REACTIONS (1)
  - Lymphoedema [Unknown]
